FAERS Safety Report 25157395 (Version 1)
Quarter: 2025Q2

REPORT INFORMATION
  Report Type: Spontaneous
  Country: PT (occurrence: PT)
  Receive Date: 20250403
  Receipt Date: 20250403
  Transmission Date: 20250716
  Serious: Yes (Other)
  Sender: B BRAUN
  Company Number: PT-B.Braun Medical Inc.-2173959

PATIENT
  Age: 40 Year
  Sex: Female

DRUGS (1)
  1. ACETAMINOPHEN [Suspect]
     Active Substance: ACETAMINOPHEN
     Indication: Headache

REACTIONS (3)
  - Cough [Recovered/Resolved]
  - Angioedema [Recovered/Resolved]
  - Rhinitis [Recovered/Resolved]
